FAERS Safety Report 7100087-1 (Version None)
Quarter: 2010Q4

REPORT INFORMATION
  Report Type: 
  Country: None (occurrence: None)
  Receive Date: 20101112
  Receipt Date: 20091102
  Transmission Date: 20110411
  Serious: No
  Sender: FDA-Public Use
  Company Number: A0814408A

PATIENT
  Age: 60 Year
  Sex: Female

DRUGS (5)
  1. COREG [Suspect]
     Route: 065
  2. ONGLYZA [Suspect]
     Dosage: 5MG UNKNOWN
     Route: 065
  3. CRESTOR [Suspect]
  4. METFORMIN [Concomitant]
  5. GLIPIZIDE [Concomitant]

REACTIONS (3)
  - OEDEMA PERIPHERAL [None]
  - SWELLING FACE [None]
  - SWOLLEN TONGUE [None]
